FAERS Safety Report 10143533 (Version 1)
Quarter: 2014Q2

REPORT INFORMATION
  Report Type: Spontaneous
  Country: US (occurrence: None)
  Receive Date: 20140429
  Receipt Date: 20140429
  Transmission Date: 20141212
  Serious: Yes (Hospitalization)
  Sender: FDA-Public Use
  Company Number: None

PATIENT
  Age: 79 Year
  Sex: Male
  Weight: 84.1 kg

DRUGS (3)
  1. EZETIMIBE/SIMVASTATIN [Suspect]
     Indication: HYPERLIPIDAEMIA
     Route: 048
     Dates: start: 20040326, end: 20140315
  2. VORICONAZOLE [Suspect]
     Indication: PANOPHTHALMITIS
     Route: 048
     Dates: start: 20140219, end: 20140315
  3. VORICONAZOLE [Suspect]
     Indication: EYE DISORDER
     Route: 048
     Dates: start: 20140219, end: 20140315

REACTIONS (5)
  - Drug interaction [None]
  - Gastritis [None]
  - Small intestinal obstruction [None]
  - Rhabdomyolysis [None]
  - Gastrointestinal haemorrhage [None]
